FAERS Safety Report 21789570 (Version 1)
Quarter: 2022Q4

REPORT INFORMATION
  Report Type: Spontaneous
  Country: DE (occurrence: DE)
  Receive Date: 20221228
  Receipt Date: 20221228
  Transmission Date: 20230113
  Serious: Yes (Hospitalization)
  Sender: FDA-Public Use
  Company Number: DE-PFIZER INC-PV202200131818

PATIENT
  Age: 5 Decade
  Sex: Female

DRUGS (19)
  1. INFLIXIMAB [Suspect]
     Active Substance: INFLIXIMAB
     Indication: Psoriatic arthropathy
     Dosage: 800 MG, BIW
     Route: 065
     Dates: start: 20220106, end: 20220309
  2. TRIAMCINOLONE [Suspect]
     Active Substance: TRIAMCINOLONE
     Dosage: UNK
     Route: 065
  3. ETORICOXIB [Suspect]
     Active Substance: ETORICOXIB
     Indication: Psoriatic arthropathy
     Dosage: 120 MG, QD
     Route: 065
     Dates: start: 20211214, end: 20220218
  4. ETORICOXIB [Suspect]
     Active Substance: ETORICOXIB
     Dosage: 120 MG, QD
     Route: 065
     Dates: start: 20220227
  5. BUPIVACAINE HYDROCHLORIDE [Suspect]
     Active Substance: BUPIVACAINE HYDROCHLORIDE
     Dosage: UNK
     Route: 065
  6. GADOLINIUM [Suspect]
     Active Substance: GADOLINIUM
     Dosage: UNK
     Route: 065
  7. STELARA [Suspect]
     Active Substance: USTEKINUMAB
     Indication: Psoriatic arthropathy
     Dosage: 45 MG
     Route: 058
     Dates: start: 20211223, end: 20211223
  8. SIMPONI [Suspect]
     Active Substance: GOLIMUMAB
     Indication: Psoriatic arthropathy
     Dosage: 50 MG, CYCLIC (50 MG, Q4W)
     Route: 058
     Dates: start: 20220209, end: 20220309
  9. DEXAMETHASONE PALMITATE [Suspect]
     Active Substance: DEXAMETHASONE PALMITATE
     Dosage: UNK
     Route: 065
  10. RINVOQ [Suspect]
     Active Substance: UPADACITINIB
     Indication: Psoriatic arthropathy
     Dosage: 15 MG, 1X/DAY (15 MG, QD)
     Route: 065
     Dates: start: 20211029, end: 20220105
  11. RINVOQ [Suspect]
     Active Substance: UPADACITINIB
     Dosage: 15 MG, 1X/DAY (15 MG, QD)
     Route: 065
     Dates: start: 20220209, end: 20220421
  12. PREDNISOLONE [Concomitant]
     Active Substance: PREDNISOLONE
     Dosage: UNK
  13. CALCIUM\CHOLECALCIFEROL [Concomitant]
     Active Substance: CALCIUM\CHOLECALCIFEROL
     Dosage: UNK
  14. PANTOPRAZOLE [Concomitant]
     Active Substance: PANTOPRAZOLE
     Dosage: UNK
  15. PREDNISONE [Concomitant]
     Active Substance: PREDNISONE
     Dosage: UNK
  16. RUPATADINE [Concomitant]
     Active Substance: RUPATADINE
     Dosage: UNK
  17. NAPROXEN SODIUM [Concomitant]
     Active Substance: NAPROXEN SODIUM
     Dosage: UNK
     Dates: start: 20220219, end: 20220226
  18. BISOPROLOL [Concomitant]
     Active Substance: BISOPROLOL
     Dosage: UNK
  19. TREMFYA [Concomitant]
     Active Substance: GUSELKUMAB
     Dosage: UNK

REACTIONS (4)
  - Hypersensitivity [Recovered/Resolved]
  - Drug hypersensitivity [Recovered/Resolved]
  - Psoriatic arthropathy [Recovered/Resolved]
  - Arthralgia [Recovered/Resolved]

NARRATIVE: CASE EVENT DATE: 20220112
